FAERS Safety Report 4437689-7 (Version None)
Quarter: 2004Q3

REPORT INFORMATION
  Report Type: 
  Country: None (occurrence: None)
  Receive Date: 20040831
  Receipt Date: 20040521
  Transmission Date: 20050211
  Serious: No
  Sender: FDA-Public Use
  Company Number: 17032

PATIENT
  Age: 51 Year
  Sex: Female

DRUGS (1)
  1. ZOVIRAX [Suspect]
     Dosage: 1APP EIGHT TIMES PER DAY
     Route: 061
     Dates: start: 20040517, end: 20040517

REACTIONS (3)
  - GENITAL BURNING SENSATION [None]
  - ILL-DEFINED DISORDER [None]
  - SKIN INFLAMMATION [None]
